FAERS Safety Report 7917656-9 (Version None)
Quarter: 2011Q4

REPORT INFORMATION
  Report Type: 
  Country: None (occurrence: None)
  Receive Date: 20111114
  Receipt Date: 20111101
  Transmission Date: 20120403
  Serious: Yes (Other)
  Sender: FDA-Public Use
  Company Number: TPA2011A07273

PATIENT
  Age: 55 Year
  Sex: Male

DRUGS (10)
  1. GLYBURIDE/METFORMIN (METFORMIN HYDROCHLORIDE, GLIBENCLAMIDE) [Concomitant]
  2. LOSARTAN HCTZ (HYDROCHLOROTHIAZIDE, LOSARTAN POTASSIUM) [Concomitant]
  3. ACTOS [Suspect]
     Indication: TYPE 2 DIABETES MELLITUS
     Dosage: 45 MG, 1 IN 1 D, PER ORAL
     Route: 048
     Dates: start: 20000901, end: 20111001
  4. SIMVASTATIN [Concomitant]
  5. ASPIRIN [Concomitant]
  6. FLOMAX [Concomitant]
  7. DILTIAZEM HCL [Concomitant]
  8. ELMIRON [Concomitant]
  9. METANX (PYRIDOXINE HYDROCHLORIDE, FOLIC ACID, VITAMIN B12 NOS) (TABLET [Concomitant]
  10. ZOLPIDEM [Concomitant]

REACTIONS (5)
  - HYDRONEPHROSIS [None]
  - PROSTATITIS [None]
  - URINE COLOUR ABNORMAL [None]
  - BLADDER TRANSITIONAL CELL CARCINOMA [None]
  - BENIGN PROSTATIC HYPERPLASIA [None]
